FAERS Safety Report 9978404 (Version 3)
Quarter: 2014Q3

REPORT INFORMATION
  Report Type: Report from Study
  Country: US (occurrence: US)
  Receive Date: 20140306
  Receipt Date: 20140825
  Transmission Date: 20150326
  Serious: Yes (Other)
  Sender: FDA-Public Use
  Company Number: US-ELI_LILLY_AND_COMPANY-US201012004390

PATIENT
  Sex: Male

DRUGS (20)
  1. METANX [Concomitant]
     Active Substance: LEVOMEFOLATE CALCIUM\METHYLCOBALAMIN\PYRIDOXAL PHOSPHATE ANHYDROUS
  2. DEXAMETHASONE W/TOBRAMYCIN [Concomitant]
  3. DILTIAZEM HYDROCHLORIDE EXTENDED RELEASE [Concomitant]
     Active Substance: DILTIAZEM HYDROCHLORIDE
     Dosage: 300 MG, UNK
  4. CYMBALTA [Concomitant]
     Active Substance: DULOXETINE HYDROCHLORIDE
     Dosage: 30 MG, UNK
  5. LUNESTA [Concomitant]
     Active Substance: ESZOPICLONE
     Dosage: 3 MG, UNK
  6. HYDROCHLOROTHIAZIDE. [Concomitant]
     Active Substance: HYDROCHLOROTHIAZIDE
     Dosage: 25 MG, UNK
  7. LATANOPROST. [Concomitant]
     Active Substance: LATANOPROST
  8. FLUOROMETHOLONE. [Concomitant]
     Active Substance: FLUOROMETHOLONE
  9. IRBESARTAN. [Concomitant]
     Active Substance: IRBESARTAN
     Dosage: 300 MG, UNK
  10. DEXAMED                            /00016002/ [Concomitant]
  11. ASPIRIN. [Concomitant]
     Active Substance: ASPIRIN
  12. CLONIDINE HCL [Concomitant]
     Active Substance: CLONIDINE HYDROCHLORIDE
     Dosage: .1 MG, UNK
  13. CLOPIDOGREL [Concomitant]
     Active Substance: CLOPIDOGREL BISULFATE
     Dosage: 75 MG, UNK
  14. LUMIGAN [Concomitant]
     Active Substance: BIMATOPROST
     Dosage: 2.5 MG, UNK
  15. VITAMIN D                          /00107901/ [Concomitant]
     Active Substance: ERGOCALCIFEROL
     Dosage: 1000 U, UNK
  16. ALPHAGAN P [Concomitant]
     Active Substance: BRIMONIDINE TARTRATE
  17. SYSTANE [Concomitant]
     Active Substance: HYPROMELLOSE 2910 (4000 MPA.S)
  18. LISPRO REGLISPRO [Suspect]
     Active Substance: INSULIN LISPRO
     Indication: TYPE 2 DIABETES MELLITUS
     Dosage: UNK, PRN
  19. GABAPENTIN. [Concomitant]
     Active Substance: GABAPENTIN
     Dosage: 100 MG, TID
  20. ATORVASTATIN [Concomitant]
     Active Substance: ATORVASTATIN
     Dosage: 40 MG, UNK

REACTIONS (4)
  - Cataract [Unknown]
  - Cerebrovascular accident [Unknown]
  - Blood glucose increased [Unknown]
  - Visual impairment [Unknown]

NARRATIVE: CASE EVENT DATE: 2009
